FAERS Safety Report 6417264-5 (Version None)
Quarter: 2009Q4

REPORT INFORMATION
  Report Type: 
  Country: None (occurrence: None)
  Receive Date: 20091028
  Receipt Date: 20091019
  Transmission Date: 20100525
  Serious: Yes (Hospitalization)
  Sender: FDA-Public Use
  Company Number: BR-ABBOTT-09P-020-0603802-00

PATIENT
  Sex: Female

DRUGS (3)
  1. SIBUTRAMINE [Suspect]
     Indication: DRUG USE FOR UNKNOWN INDICATION
     Dates: start: 20080101, end: 20080401
  2. SIBUTRAMINE [Suspect]
  3. FLUOXETINE [Concomitant]
     Indication: DRUG USE FOR UNKNOWN INDICATION
     Dosage: 20MG

REACTIONS (2)
  - CONFUSIONAL STATE [None]
  - ILL-DEFINED DISORDER [None]
